FAERS Safety Report 9363427 (Version 1)
Quarter: 2013Q2

REPORT INFORMATION
  Report Type: Spontaneous
  Country: GB (occurrence: None)
  Receive Date: 20130618
  Receipt Date: 20130618
  Transmission Date: 20140414
  Serious: Yes (Hospitalization, Other)
  Sender: FDA-Public Use
  Company Number: DKLU1091562

PATIENT
  Age: 11 Year
  Sex: Male

DRUGS (16)
  1. COSMEGEN [Suspect]
     Indication: NEOPLASM MALIGNANT
     Dosage: 1.95 MG MILLIGRAM(S), 1 IN 3 WK, INTRAVENOUS BOLUS
     Route: 040
     Dates: start: 20111207
  2. BEVACIZUMAB (BEVACIZUMAB) [Suspect]
     Indication: NEOPLASM MALIGNANT
     Dosage: 345 MG MILLIGRAM(S), 1 IN 3 WK, INTRAVENOUS (NOT OTHERWISE SPECIFIED)
     Route: 042
     Dates: start: 20111207
  3. VINCRISTINE (VINCRISTINE) (UNKNOWN) [Suspect]
     Indication: NEOPLASM MALIGNANT
     Dosage: 2 MG MILLIGRAM(S), 1 IN 3 WK, INTRAVENOUS BOLUS
     Route: 040
     Dates: start: 20111207
  4. DOXORUBICIN [Suspect]
     Indication: NEOPLASM MALIGNANT
     Dosage: 42 MG MILLIGRAM(S), 1 IN 3 WK, INTRAVENOUS (NOT OTHERWISE SPECIFIED)
     Route: 042
     Dates: start: 20111207
  5. IFOSFAMIDE [Suspect]
     Indication: NEOPLASM MALIGNANT
     Dosage: 3900 MG MILLIGRAM(S), 1 IN 3 WK, INTRAVENOUS (NOT OTHERWISE SPECFIED)
     Route: 042
     Dates: start: 20111207
  6. FENTANYL PATCH (FENTANYL CITRATE) [Concomitant]
  7. ONDANSETRON (ONDANSETRON) [Concomitant]
  8. METOCLOPRAMIDE (METOCLOPRAMIDE) [Concomitant]
  9. LEVEMIR (INSULIN DETEMIR) [Concomitant]
  10. CLOTRIMAZOLE (CLOTRIMAZOLE) (CREAM) [Concomitant]
  11. GELCLAIR (GELCLAIR /01702001/) [Concomitant]
  12. NOVORAPID (INSULIN ASPART) [Concomitant]
  13. ORAMORPH (MORPHINE SULFATE PENTAHYDRATE) [Concomitant]
  14. COTRIMOXAZOLE (BACTRIM) [Concomitant]
  15. OXYBUTYNIN (OXYBUTYNIN) [Concomitant]
  16. LANSOPRAZOLE (LANSOPRAZOLE) [Concomitant]

REACTIONS (10)
  - Febrile neutropenia [None]
  - Mucosal inflammation [None]
  - Balanitis [None]
  - Diarrhoea [None]
  - Nausea [None]
  - Vomiting [None]
  - Clostridium difficile colitis [None]
  - Anaemia [None]
  - White blood cell count decreased [None]
  - Condition aggravated [None]
